FAERS Safety Report 5569345-6 (Version None)
Quarter: 2007Q4

REPORT INFORMATION
  Report Type: 
  Country: None (occurrence: None)
  Receive Date: 20071220
  Receipt Date: 20071031
  Transmission Date: 20080405
  Serious: No
  Sender: FDA-Public Use
  Company Number: A0690805A

PATIENT
  Age: 53 Year
  Sex: Male

DRUGS (3)
  1. AVODART [Suspect]
     Indication: BENIGN PROSTATIC HYPERPLASIA
     Dosage: 1CAP PER DAY
     Route: 048
     Dates: start: 20060301, end: 20071001
  2. LIPITOR [Concomitant]
  3. ASPIRIN [Concomitant]

REACTIONS (5)
  - ERECTILE DYSFUNCTION [None]
  - GENITAL ERYTHEMA [None]
  - LIBIDO DECREASED [None]
  - PAINFUL ERECTION [None]
  - SEMEN VOLUME DECREASED [None]
